FAERS Safety Report 9630670 (Version 1)
Quarter: 2013Q4

REPORT INFORMATION
  Report Type: Spontaneous
  Country: FR (occurrence: None)
  Receive Date: 20131011
  Receipt Date: 20131011
  Transmission Date: 20140711
  Serious: Yes (Hospitalization)
  Sender: FDA-Public Use
  Company Number: 1941974

PATIENT
  Age: 56 Year
  Sex: Male

DRUGS (2)
  1. GEMCITABINE HYDROCHLORIDE [Suspect]
     Indication: CHOLANGIOCARCINOMA
     Dates: start: 20130117, end: 20130820
  2. SKENAN [Concomitant]

REACTIONS (1)
  - Thrombotic microangiopathy [None]
